FAERS Safety Report 23140499 (Version 1)
Quarter: 2023Q4

REPORT INFORMATION
  Report Type: Report from Study
  Country: US (occurrence: US)
  Receive Date: 20231102
  Receipt Date: 20231102
  Transmission Date: 20240110
  Serious: Yes (Other)
  Sender: FDA-Public Use
  Company Number: US-ABBVIE-5477928

PATIENT
  Sex: Female

DRUGS (1)
  1. RINVOQ [Suspect]
     Active Substance: UPADACITINIB
     Indication: Rheumatoid arthritis
     Route: 048

REACTIONS (5)
  - Cataract [Unknown]
  - Pain [Unknown]
  - Intervertebral disc protrusion [Unknown]
  - Uterine leiomyoma [Unknown]
  - Back disorder [Unknown]

NARRATIVE: CASE EVENT DATE: 20230101
